FAERS Safety Report 19201308 (Version 1)
Quarter: 2021Q2

REPORT INFORMATION
  Report Type: Report from Study
  Country: BR (occurrence: BR)
  Receive Date: 20210430
  Receipt Date: 20210430
  Transmission Date: 20210717
  Serious: Yes (Other)
  Sender: FDA-Public Use
  Company Number: BR-JNJFOC-20180309223

PATIENT
  Age: 69 Year
  Sex: Male
  Weight: 78 kg

DRUGS (8)
  1. BIO?MANGUINHOS INFLIXIMABE [Suspect]
     Active Substance: INFLIXIMAB
     Indication: RHEUMATOID ARTHRITIS
     Route: 042
     Dates: start: 20100526
  2. BIO?MANGUINHOS INFLIXIMABE [Suspect]
     Active Substance: INFLIXIMAB
     Route: 042
     Dates: start: 20180918
  3. TAMSULOSIN HYDROCHLORIDE. [Suspect]
     Active Substance: TAMSULOSIN HYDROCHLORIDE
     Indication: PRODUCT USED FOR UNKNOWN INDICATION
     Route: 065
  4. INFLIXIMAB, RECOMBINANT [Suspect]
     Active Substance: INFLIXIMAB
     Indication: COLITIS
  5. PRESSAT [Concomitant]
     Active Substance: AMLODIPINE BESYLATE
     Route: 065
  6. INFLIXIMAB, RECOMBINANT [Suspect]
     Active Substance: INFLIXIMAB
     Indication: COLITIS
  7. BIO?MANGUINHOS INFLIXIMABE [Suspect]
     Active Substance: INFLIXIMAB
     Indication: COLITIS
     Route: 042
  8. INFLIXIMAB, RECOMBINANT [Suspect]
     Active Substance: INFLIXIMAB
     Indication: RHEUMATOID ARTHRITIS
     Route: 042
     Dates: start: 20160224, end: 20210418

REACTIONS (6)
  - Eye swelling [Recovered/Resolved]
  - Eye infection [Recovered/Resolved]
  - Benign prostatic hyperplasia [Recovered/Resolved]
  - Abdominal pain upper [Recovered/Resolved]
  - Blood pressure fluctuation [Unknown]
  - COVID-19 [Unknown]

NARRATIVE: CASE EVENT DATE: 2010
